FAERS Safety Report 6207918-8 (Version None)
Quarter: 2009Q2

REPORT INFORMATION
  Report Type: 
  Country: None (occurrence: None)
  Receive Date: 20090529
  Receipt Date: 20090519
  Transmission Date: 20091009
  Serious: Yes (Death, Hospitalization)
  Sender: FDA-Public Use
  Company Number: GB-B.I. PHARMACEUTICALS,INC./RIDGEFIELD-2009-DE-03856GD

PATIENT
  Age: 65 Year
  Sex: Female

DRUGS (4)
  1. CLONIDINE [Suspect]
     Indication: ABDOMINAL PAIN UPPER
     Dosage: 150MCG
     Route: 008
  2. MORPHINE [Suspect]
     Indication: ABDOMINAL PAIN UPPER
     Dosage: 45MG
     Route: 008
  3. MORPHINE [Suspect]
     Dosage: DOSE TITRATION TO 300 MG
     Route: 058
  4. BUPIVACAINE [Suspect]
     Indication: ABDOMINAL PAIN UPPER
     Dosage: 13ML
     Route: 008

REACTIONS (2)
  - DEATH [None]
  - DRUG INEFFECTIVE [None]
